FAERS Safety Report 24618368 (Version 3)
Quarter: 2025Q2

REPORT INFORMATION
  Report Type: Spontaneous
  Country: US (occurrence: US)
  Receive Date: 20241114
  Receipt Date: 20250606
  Transmission Date: 20250716
  Serious: No
  Sender: HISAMITSU PHARMACEUTICAL CO., INC.
  Company Number: US-HISAMITSU PHARMACEUTICAL CO., INC.-2024-NOV-US000593

PATIENT
  Sex: Female
  Weight: 65.76 kg

DRUGS (3)
  1. SECUADO [Suspect]
     Active Substance: ASENAPINE
     Indication: Vascular dementia
     Route: 062
     Dates: start: 2023
  2. SECUADO [Suspect]
     Active Substance: ASENAPINE
     Indication: Dementia Alzheimer^s type
  3. SECUADO [Suspect]
     Active Substance: ASENAPINE
     Indication: Off label use

REACTIONS (7)
  - Application site inflammation [Not Recovered/Not Resolved]
  - Application site erythema [Not Recovered/Not Resolved]
  - Application site pruritus [Not Recovered/Not Resolved]
  - Application site irritation [Not Recovered/Not Resolved]
  - Therapeutic product effective for unapproved indication [Not Recovered/Not Resolved]
  - Product administered at inappropriate site [Not Recovered/Not Resolved]
  - Off label use [Not Recovered/Not Resolved]

NARRATIVE: CASE EVENT DATE: 20230101
